FAERS Safety Report 8225775 (Version 2)
Quarter: 2013Q1

REPORT INFORMATION
  Report Type: Report from Study
  Country: BR (occurrence: BR)
  Receive Date: 20111101
  Receipt Date: 20130308
  Transmission Date: 20140127
  Serious: Yes (Other)
  Sender: FDA-Public Use
  Company Number: BR-GILEAD-2011-0045322

PATIENT
  Age: 44 Year
  Sex: Female

DRUGS (5)
  1. TENOFOVIR DISOPROXIL FUMARATE [Suspect]
     Indication: HIV INFECTION
     Dosage: UNK, QD
     Dates: start: 20110228
  2. LAMIVUDINE [Suspect]
     Indication: HIV INFECTION
     Dosage: UNK, QD
     Dates: start: 20110228
  3. RALTEGRAVIR [Suspect]
     Indication: HIV INFECTION
     Dosage: UNK, QD
     Dates: start: 20110228
  4. CO-TRIMOXAZOLE [Suspect]
     Dosage: UNK, QD
     Dates: start: 20110114, end: 20110621
  5. RIFAMPIN [Concomitant]
     Indication: TUBERCULOSIS
     Dosage: UNK
     Dates: start: 20110320

REACTIONS (1)
  - Neutropenia [Unknown]
